FAERS Safety Report 9198807 (Version 1)
Quarter: 2013Q1

REPORT INFORMATION
  Report Type: Spontaneous
  Country: US (occurrence: None)
  Receive Date: 20130327
  Receipt Date: 20130327
  Transmission Date: 20140127
  Serious: Yes (Other)
  Sender: FDA-Public Use
  Company Number: None

PATIENT
  Age: 21 Month
  Sex: Male
  Weight: 13.15 kg

DRUGS (1)
  1. MONTELUKAST SODIUM [Suspect]
     Dosage: ONCE A DAY

REACTIONS (5)
  - Drug ineffective [None]
  - Sinus disorder [None]
  - Rhinorrhoea [None]
  - Cough [None]
  - Ear infection [None]
